FAERS Safety Report 7775342-2 (Version None)
Quarter: 2011Q3

REPORT INFORMATION
  Report Type: 
  Country: None (occurrence: None)
  Receive Date: 20110921
  Receipt Date: 20110913
  Transmission Date: 20111222
  Serious: Yes (Hospitalization, Other)
  Sender: FDA-Public Use
  Company Number: 2010MA004939

PATIENT
  Sex: Female

DRUGS (23)
  1. SIMVASTATIN [Concomitant]
  2. SYNTHORID [Concomitant]
  3. METOCLOPRAMIDE [Suspect]
     Indication: DIABETIC GASTROPARESIS
     Dosage: 10 MG; QID; PO
     Route: 048
     Dates: start: 20000428, end: 20090506
  4. ENALAPRIL MALEATE [Concomitant]
  5. PAROXETINE HCL [Concomitant]
  6. REQUIP [Concomitant]
  7. EVISTA [Concomitant]
  8. HYDROCHLOROTHIAZIDE [Concomitant]
  9. TRAZODONE HYDROCHLORIDE [Concomitant]
  10. PREVACID [Concomitant]
  11. DICLOFENAC [Concomitant]
  12. HUMIBID [Concomitant]
  13. INSULIN [Concomitant]
  14. SULFAMETHOXAZOLE AND TRIMETHOPRIM [Concomitant]
  15. HUMALOG [Concomitant]
  16. MULITIVATIMINS [Concomitant]
  17. PREDNISOLONE [Concomitant]
  18. XIBROM [Concomitant]
  19. CALCIUM WITH D [Concomitant]
  20. LANTUS [Concomitant]
  21. NPH INSULIN [Concomitant]
  22. ZYMAR [Concomitant]
  23. ZOCOR [Concomitant]

REACTIONS (33)
  - EXTRAPYRAMIDAL DISORDER [None]
  - FIBROMYALGIA [None]
  - FEELING ABNORMAL [None]
  - HYPERSOMNIA [None]
  - EMOTIONAL DISORDER [None]
  - BLOOD GLUCOSE ABNORMAL [None]
  - HYPOGLYCAEMIA [None]
  - CEREBROVASCULAR DISORDER [None]
  - DYSKINESIA [None]
  - PROTRUSION TONGUE [None]
  - TARDIVE DYSKINESIA [None]
  - AKATHISIA [None]
  - ANXIETY [None]
  - NEUROPATHY PERIPHERAL [None]
  - CONFUSIONAL STATE [None]
  - OVERDOSE [None]
  - ABDOMINAL DISTENSION [None]
  - FEELING COLD [None]
  - NEPHROPATHY [None]
  - DIABETIC NEPHROPATHY [None]
  - CHOREA [None]
  - DIZZINESS [None]
  - CEREBRAL HAEMORRHAGE [None]
  - MOVEMENT DISORDER [None]
  - HYPOAESTHESIA [None]
  - DYSPEPSIA [None]
  - BRAIN STEM HAEMORRHAGE [None]
  - ECONOMIC PROBLEM [None]
  - INJURY [None]
  - DISORIENTATION [None]
  - BRUXISM [None]
  - TREMOR [None]
  - PARAESTHESIA [None]
